FAERS Safety Report 6594447-5 (Version None)
Quarter: 2010Q1

REPORT INFORMATION
  Report Type: 
  Country: None (occurrence: None)
  Receive Date: 20100222
  Receipt Date: 20100211
  Transmission Date: 20100710
  Serious: Yes (Hospitalization)
  Sender: FDA-Public Use
  Company Number: US-SANOFI-AVENTIS-2010SA008853

PATIENT
  Age: 71 Year
  Sex: Female

DRUGS (2)
  1. LANTUS [Suspect]
     Indication: TYPE 2 DIABETES MELLITUS
     Dosage: 30-35 UNITS DAILY
     Route: 058
  2. HUMALOG [Concomitant]
     Dosage: 3 TIMES

REACTIONS (4)
  - CARDIAC DISORDER [None]
  - FALL [None]
  - HAEMORRHAGE [None]
  - HYPOGLYCAEMIC UNCONSCIOUSNESS [None]
